FAERS Safety Report 7987347-7 (Version None)
Quarter: 2011Q4

REPORT INFORMATION
  Report Type: 
  Country: None (occurrence: None)
  Receive Date: 20111216
  Receipt Date: 20111214
  Transmission Date: 20120403
  Serious: Yes (Other)
  Sender: FDA-Public Use
  Company Number: US-JNJFOC-20111009282

PATIENT
  Sex: Female
  Weight: 102.06 kg

DRUGS (5)
  1. COZAAR [Concomitant]
  2. ASPIRIN [Concomitant]
  3. CLOBETASOL [Concomitant]
  4. STELARA [Suspect]
     Indication: PSORIASIS
     Dosage: 6 INJECTIONS TOTAL
     Route: 058
     Dates: start: 20100603, end: 20110701
  5. DESONIDE [Concomitant]

REACTIONS (2)
  - VAGINAL CANCER [None]
  - METASTASES TO LYMPH NODES [None]
